FAERS Safety Report 24990239 (Version 1)
Quarter: 2025Q1

REPORT INFORMATION
  Report Type: Spontaneous
  Country: MX (occurrence: MX)
  Receive Date: 20250220
  Receipt Date: 20250220
  Transmission Date: 20250409
  Serious: Yes (Hospitalization, Other)
  Sender: RANBAXY
  Company Number: MX-SUN PHARMACEUTICAL INDUSTRIES LTD-2025R1-494278

PATIENT
  Age: 67 Year
  Sex: Female

DRUGS (1)
  1. ATORVASTATIN [Suspect]
     Active Substance: ATORVASTATIN
     Indication: Blood cholesterol increased
     Dosage: 40 MILLIGRAM, QD
     Route: 065

REACTIONS (1)
  - Peripheral ischaemia [Unknown]
